FAERS Safety Report 22782969 (Version 4)
Quarter: 2024Q1

REPORT INFORMATION
  Report Type: Spontaneous
  Country: US (occurrence: US)
  Receive Date: 20230803
  Receipt Date: 20240212
  Transmission Date: 20240410
  Serious: Yes (Other)
  Sender: FDA-Public Use
  Company Number: US-PFIZER INC-PV202300133508

PATIENT
  Age: 35 Year
  Sex: Female

DRUGS (1)
  1. XELJANZ XR [Suspect]
     Active Substance: TOFACITINIB CITRATE
     Indication: Juvenile idiopathic arthritis
     Dosage: 11 MG, 1X/DAY
     Route: 048

REACTIONS (7)
  - Coccidioidomycosis [Unknown]
  - Rheumatoid arthritis [Unknown]
  - Glaucoma [Unknown]
  - Eye operation [Unknown]
  - Scar [Unknown]
  - Condition aggravated [Unknown]
  - Off label use [Unknown]
